FAERS Safety Report 11118987 (Version 1)
Quarter: 2015Q2

REPORT INFORMATION
  Report Type: Report from Study
  Country: US (occurrence: US)
  Receive Date: 20150518
  Receipt Date: 20150518
  Transmission Date: 20150821
  Serious: Yes (Other)
  Sender: FDA-Public Use
  Company Number: US-BAXTER-2015BAX025735

PATIENT
  Sex: Male

DRUGS (2)
  1. HYQVIA [Suspect]
     Active Substance: HUMAN IMMUNOGLOBULIN G\HYALURONIDASE RECOMBINANT HUMAN
     Indication: PRIMARY IMMUNODEFICIENCY SYNDROME
     Route: 058
  2. GAMMAGARD LIQUID [Suspect]
     Active Substance: HUMAN IMMUNOGLOBULIN G
     Indication: PRODUCT USED FOR UNKNOWN INDICATION
     Route: 042

REACTIONS (7)
  - Chills [Recovered/Resolved]
  - Gastrointestinal disorder [Unknown]
  - Sleep apnoea syndrome [Recovered/Resolved]
  - Gastric cancer [Recovered/Resolved]
  - Infusion site discomfort [Recovered/Resolved]
  - Diarrhoea [Recovered/Resolved]
  - Pain [Recovered/Resolved]

NARRATIVE: CASE EVENT DATE: 2010
